FAERS Safety Report 7297170-7 (Version None)
Quarter: 2011Q1

REPORT INFORMATION
  Report Type: 
  Country: None (occurrence: None)
  Receive Date: 20110216
  Receipt Date: 20110215
  Transmission Date: 20110831
  Serious: No
  Sender: FDA-Public Use
  Company Number: US-PFIZER INC-2011033636

PATIENT
  Sex: Female

DRUGS (2)
  1. MEDROXYPROGESTERONE ACETATE [Suspect]
     Indication: OFF LABEL USE
     Dosage: 150 MG/ML, UNK
     Dates: end: 20110101
  2. MEDROXYPROGESTERONE ACETATE [Suspect]
     Indication: MENSTRUAL DISCOMFORT

REACTIONS (6)
  - BRUXISM [None]
  - HYPERHIDROSIS [None]
  - SCREAMING [None]
  - MOOD ALTERED [None]
  - ABNORMAL BEHAVIOUR [None]
  - INSOMNIA [None]
